FAERS Safety Report 24664319 (Version 1)
Quarter: 2024Q4

REPORT INFORMATION
  Report Type: Spontaneous
  Country: US (occurrence: None)
  Receive Date: 20241125
  Receipt Date: 20241125
  Transmission Date: 20250114
  Serious: Yes (Hospitalization)
  Sender: Public
  Company Number: None

PATIENT
  Age: 75 Year
  Sex: Female

DRUGS (1)
  1. DEFERIPRONE [Suspect]
     Active Substance: DEFERIPRONE
     Indication: Haemochromatosis
     Dosage: FREQUENCY : 3 TIMES A DAY;?

REACTIONS (6)
  - Diarrhoea [None]
  - Gastrointestinal disorder [None]
  - Palpitations [None]
  - Chest pain [None]
  - Back pain [None]
  - Therapy cessation [None]
